FAERS Safety Report 7601563-5 (Version None)
Quarter: 2011Q3

REPORT INFORMATION
  Report Type: 
  Country: None (occurrence: None)
  Receive Date: 20110711
  Receipt Date: 20110628
  Transmission Date: 20111222
  Serious: Yes (Hospitalization, Other)
  Sender: FDA-Public Use
  Company Number: PHHY2011DE57023

PATIENT
  Sex: Male
  Weight: 71 kg

DRUGS (6)
  1. EXFORGE HCT [Suspect]
     Indication: HYPERTENSION
     Route: 048
  2. STATINS [Concomitant]
  3. EXFORGE [Suspect]
     Indication: HYPERTENSION
     Dosage: 1 DF, QD
     Route: 048
     Dates: start: 20090313
  4. EXFORGE [Suspect]
     Dosage: 1 DF, QD
     Route: 048
     Dates: start: 20110301
  5. CHOLESTEROL LOWERING AGENTS [Concomitant]
  6. CRESTOR [Concomitant]
     Indication: HYPERCHOLESTEROLAEMIA
     Dosage: 1 DF, QD
     Route: 048
     Dates: start: 20090101

REACTIONS (2)
  - HYPERTENSION [None]
  - CREATININE URINE INCREASED [None]
